FAERS Safety Report 6584158-4 (Version None)
Quarter: 2010Q1

REPORT INFORMATION
  Report Type: 
  Country: None (occurrence: None)
  Receive Date: 20100213
  Receipt Date: 20100213
  Transmission Date: 20100710
  Serious: Yes (Hospitalization)
  Sender: FDA-Public Use
  Company Number: None

PATIENT
  Age: 81 Year
  Sex: Male
  Weight: 92 kg

DRUGS (12)
  1. WARFARIN SODIUM [Suspect]
     Indication: ANTICOAGULANT THERAPY
     Dosage: 4 MG DAILY PO
     Route: 048
  2. WARFARIN SODIUM [Suspect]
     Indication: ATRIAL FIBRILLATION
     Dosage: 4 MG DAILY PO
     Route: 048
  3. LEVOTHYROXINE SODIUM [Concomitant]
  4. METRONIDAZOLE CREAM [Concomitant]
  5. HYDROCHLOROTHIAZIDE [Concomitant]
  6. FLECAINIDE ACETATE [Concomitant]
  7. AMLODIPINE [Concomitant]
  8. BENAZEPRIL HYDROCHLORIDE [Concomitant]
  9. FUROSEMIDE [Concomitant]
  10. WARFARIN SODIUM [Concomitant]
  11. POTASSIUM CHLORIDE [Concomitant]
  12. LATANOPROST [Concomitant]

REACTIONS (9)
  - ABASIA [None]
  - ASTHENIA [None]
  - EPISTAXIS [None]
  - FATIGUE [None]
  - HAEMATOCRIT DECREASED [None]
  - HAEMOGLOBIN DECREASED [None]
  - HYPOTENSION [None]
  - INTERNATIONAL NORMALISED RATIO INCREASED [None]
  - PULMONARY OEDEMA [None]
